FAERS Safety Report 18480759 (Version 1)
Quarter: 2020Q4

REPORT INFORMATION
  Report Type: Report from Study
  Country: ES (occurrence: ES)
  Receive Date: 20201109
  Receipt Date: 20201109
  Transmission Date: 20210114
  Serious: Yes (Death, Other)
  Sender: FDA-Public Use
  Company Number: ES-PFIZER INC-2020430948

PATIENT
  Age: 90 Year
  Sex: Female

DRUGS (9)
  1. AZITHROMYCIN ANHYDROUS. [Suspect]
     Active Substance: AZITHROMYCIN ANHYDROUS
     Indication: COVID-19 PNEUMONIA
     Dosage: 500 MG, 1X/DAY
     Route: 048
     Dates: start: 20200831, end: 20200902
  2. OMEPRAZOL [Suspect]
     Active Substance: OMEPRAZOLE
     Dosage: 1 AMPOULE DAILY
     Route: 042
     Dates: start: 20200831
  3. DEXAMETHASONE. [Suspect]
     Active Substance: DEXAMETHASONE
     Indication: COVID-19 PNEUMONIA
     Dosage: 6 MG, 1X/DAY
     Route: 042
     Dates: start: 20200831
  4. CEFTRIAXONE. [Suspect]
     Active Substance: CEFTRIAXONE
     Indication: COVID-19 PNEUMONIA
     Dosage: 2 G, 1X/DAY
     Route: 042
     Dates: start: 20200831
  5. CLEXANE [Suspect]
     Active Substance: ENOXAPARIN SODIUM
     Dosage: UNK, 1X/DAY(1-0-0)
     Route: 058
     Dates: start: 20200831
  6. SEGURIL [Suspect]
     Active Substance: FUROSEMIDE
     Dosage: UNK, 1X/DAY (1-0-0)
     Route: 048
     Dates: start: 20200831
  7. REMDESIVIR. [Suspect]
     Active Substance: REMDESIVIR
     Indication: COVID-19 PNEUMONIA
     Dosage: 200 / MG THE FIRST DAY AND 100 MG THE REMAINING 4 DAYS
     Route: 042
     Dates: start: 20200831, end: 20200904
  8. REMDESIVIR. [Suspect]
     Active Substance: REMDESIVIR
     Dosage: 200 / MG THE FIRST DAY AND 100 MG THE REMAINING 4 DAYS
     Route: 042
     Dates: start: 20200831, end: 20200904
  9. LEVOFLOXACIN. [Suspect]
     Active Substance: LEVOFLOXACIN
     Indication: COVID-19 PNEUMONIA
     Dosage: 500 MG, ALTERNATE DAY
     Route: 042
     Dates: start: 20200831

REACTIONS (2)
  - Acute kidney injury [Fatal]
  - Agitation [Not Recovered/Not Resolved]

NARRATIVE: CASE EVENT DATE: 202009
